FAERS Safety Report 4371171-0 (Version None)
Quarter: 2004Q2

REPORT INFORMATION
  Report Type: 
  Country: None (occurrence: None)
  Receive Date: 20040604
  Receipt Date: 20040514
  Transmission Date: 20050107
  Serious: Yes (Other)
  Sender: FDA-Public Use
  Company Number: IE-ROCHE-367900

PATIENT
  Age: 59 Year
  Sex: Female
  Weight: 91.3 kg

DRUGS (6)
  1. XENICAL [Suspect]
     Indication: OBESITY
     Route: 048
     Dates: start: 20031011, end: 20040430
  2. ATECOR [Concomitant]
     Dosage: TAKEN IN THE MORNING.
  3. NU-SEALS ASPIRIN [Concomitant]
     Dosage: TAKEN IN THE MORNING.
  4. CENTYL K [Concomitant]
     Dosage: TAKEN IN THE MORNING.
  5. FOSAMAX [Concomitant]
  6. CALCICHEW D3 FORTE [Concomitant]

REACTIONS (3)
  - BLOOD BILIRUBIN INCREASED [None]
  - BLOOD CHOLESTEROL INCREASED [None]
  - CHOLELITHIASIS [None]
